FAERS Safety Report 24344051 (Version 1)
Quarter: 2024Q3

REPORT INFORMATION
  Report Type: Spontaneous
  Country: US (occurrence: US)
  Receive Date: 20240920
  Receipt Date: 20240920
  Transmission Date: 20241017
  Serious: No
  Sender: BRAEBURN PHARMACEUTICALS
  Company Number: US-BRAEBURN-US-BRA-24-000640

PATIENT
  Sex: Male

DRUGS (2)
  1. BRIXADI [Suspect]
     Active Substance: BUPRENORPHINE
     Indication: Drug dependence
     Dosage: 64 MILLIGRAM, MONTHLY
     Route: 058
     Dates: start: 20240711
  2. BUPRENORPHINE [Concomitant]
     Active Substance: BUPRENORPHINE
     Indication: Product used for unknown indication
     Dosage: 2 MILLIGRAM, QD
     Route: 060

REACTIONS (5)
  - Off label use [Unknown]
  - Somnolence [Unknown]
  - Adverse event [Unknown]
  - Nausea [Unknown]
  - Constipation [Unknown]
